FAERS Safety Report 4914020-1 (Version None)
Quarter: 2006Q1

REPORT INFORMATION
  Report Type: 
  Country: None (occurrence: None)
  Receive Date: 20060216
  Receipt Date: 20060127
  Transmission Date: 20060701
  Serious: Yes (Other)
  Sender: FDA-Public Use
  Company Number: JP-ROCHE-434572

PATIENT
  Age: 29 Year
  Sex: Female
  Weight: 50 kg

DRUGS (5)
  1. TAMIFLU [Suspect]
     Route: 048
     Dates: start: 20060126, end: 20060126
  2. MUCODYNE [Concomitant]
     Route: 048
     Dates: start: 20060126, end: 20060126
  3. ASVERIN [Concomitant]
     Route: 048
     Dates: start: 20060126, end: 20060126
  4. THEO-DUR [Concomitant]
     Dosage: DOSE FORM REPORTED AS ORAL FORMULATION
     Route: 048
  5. SURGAM [Concomitant]
     Dosage: TAKEN AS NEEDED
     Route: 048

REACTIONS (4)
  - ABDOMINAL PAIN [None]
  - CONVULSION [None]
  - DEPRESSED LEVEL OF CONSCIOUSNESS [None]
  - NAUSEA [None]
